FAERS Safety Report 13988096 (Version 3)
Quarter: 2017Q4

REPORT INFORMATION
  Report Type: Spontaneous
  Country: JP (occurrence: JP)
  Receive Date: 20170919
  Receipt Date: 20171122
  Transmission Date: 20180321
  Serious: Yes (Hospitalization)
  Sender: FDA-Public Use
  Company Number: JP-SA-2017SA170611

PATIENT
  Sex: Male

DRUGS (9)
  1. 5-FU [Suspect]
     Active Substance: FLUOROURACIL
     Indication: RECTAL CANCER
     Dosage: CONTINUOUS INFUSION
  2. VECTIBIX [Suspect]
     Active Substance: PANITUMUMAB
     Indication: RECTAL CANCER
     Route: 065
  3. ELPLAT [Suspect]
     Active Substance: OXALIPLATIN
     Indication: RECTAL CANCER
     Dosage: I.V. INFUSION SOLUTION
     Route: 041
     Dates: start: 20121017, end: 20121017
  4. 5-FU [Suspect]
     Active Substance: FLUOROURACIL
     Indication: RECTAL CANCER
     Route: 040
     Dates: start: 20121017, end: 20121017
  5. ELPLAT [Suspect]
     Active Substance: OXALIPLATIN
     Indication: RECTAL CANCER
     Dosage: I.V. INFUSION SOLUTION
     Route: 041
     Dates: start: 20121114, end: 20121114
  6. LEVOFOLINATE [Suspect]
     Active Substance: LEVOLEUCOVORIN CALCIUM
     Indication: RECTAL CANCER
     Dosage: I.V. INFUSION SOLUTION
     Route: 041
     Dates: start: 20121017, end: 20121017
  7. LEVOFOLINATE [Suspect]
     Active Substance: LEVOLEUCOVORIN CALCIUM
     Indication: RECTAL CANCER
     Dosage: I.V. INFUSION SOLUTION
     Route: 041
     Dates: start: 20121114, end: 20121114
  8. 5-FU [Suspect]
     Active Substance: FLUOROURACIL
     Indication: RECTAL CANCER
     Dosage: CONTINUOUS INFUSION
     Route: 042
     Dates: start: 20121017, end: 20121017
  9. VECTIBIX [Suspect]
     Active Substance: PANITUMUMAB
     Indication: RECTAL CANCER
     Route: 065
     Dates: start: 20121017, end: 20121017

REACTIONS (7)
  - Dysphagia [Recovering/Resolving]
  - Oesophageal carcinoma [Recovering/Resolving]
  - Oesophageal stenosis [Recovering/Resolving]
  - Abdominal pain upper [Recovering/Resolving]
  - Malaise [Recovering/Resolving]
  - Oesophagitis [Recovering/Resolving]
  - Decreased appetite [Recovering/Resolving]

NARRATIVE: CASE EVENT DATE: 20121201
